FAERS Safety Report 5369598-3 (Version None)
Quarter: 2007Q2

REPORT INFORMATION
  Report Type: 
  Country: None (occurrence: None)
  Receive Date: 20070620
  Receipt Date: 20070606
  Transmission Date: 20071010
  Serious: Yes (Hospitalization)
  Sender: FDA-Public Use
  Company Number: 20073598

PATIENT
  Sex: Male

DRUGS (1)
  1. LIORESAL INTRATHECAL (BALCOFEN INJECTION) [Suspect]
     Indication: MUSCLE SPASTICITY
     Dosage: DAILY, INTRATHECAL
     Route: 037

REACTIONS (9)
  - DEVICE FAILURE [None]
  - DRUG WITHDRAWAL SYNDROME [None]
  - DYSTONIA [None]
  - IRRITABILITY [None]
  - MEDICAL DEVICE COMPLICATION [None]
  - MOVEMENT DISORDER [None]
  - NAUSEA [None]
  - PRURITUS [None]
  - TACHYCARDIA [None]
